FAERS Safety Report 11305401 (Version 1)
Quarter: 2015Q3

REPORT INFORMATION
  Report Type: Spontaneous
  Country: US (occurrence: US)
  Receive Date: 20150723
  Receipt Date: 20150723
  Transmission Date: 20151125
  Serious: No
  Sender: FDA-Public Use
  Company Number: US-JNJFOC-20150400870

PATIENT
  Age: 61 Year
  Sex: Female
  Weight: 52.62 kg

DRUGS (5)
  1. ZYRTEC [Suspect]
     Active Substance: CETIRIZINE HYDROCHLORIDE
     Indication: PRURITUS
     Dosage: STRENGTH: 10 MG
     Route: 048
     Dates: start: 20150330, end: 20150330
  2. ZYRTEC [Suspect]
     Active Substance: CETIRIZINE HYDROCHLORIDE
     Indication: EYE PRURITUS
     Dosage: STRENGTH: 10 MG
     Route: 048
     Dates: start: 20150330, end: 20150330
  3. ZYRTEC [Suspect]
     Active Substance: CETIRIZINE HYDROCHLORIDE
     Indication: LACRIMATION INCREASED
     Dosage: STRENGTH: 10 MG
     Route: 048
     Dates: start: 20150330, end: 20150330
  4. FLOVENT [Concomitant]
     Active Substance: FLUTICASONE PROPIONATE
     Indication: ASTHMA
     Dosage: YEARS
     Route: 065
  5. ZYRTEC [Suspect]
     Active Substance: CETIRIZINE HYDROCHLORIDE
     Indication: RHINORRHOEA
     Dosage: STRENGTH: 10 MG
     Route: 048
     Dates: start: 20150330, end: 20150330

REACTIONS (1)
  - Drug ineffective [Unknown]
